FAERS Safety Report 7227038-3 (Version None)
Quarter: 2011Q1

REPORT INFORMATION
  Report Type: 
  Country: None (occurrence: None)
  Receive Date: 20110111
  Receipt Date: 20110111
  Transmission Date: 20110831
  Serious: Yes (Hospitalization, Disabling, Other)
  Sender: FDA-Public Use
  Company Number: None

PATIENT
  Sex: Female
  Weight: 68.0396 kg

DRUGS (1)
  1. DARVOCET [Suspect]
     Indication: PROCEDURAL PAIN
     Dates: start: 20100101, end: 20100201

REACTIONS (1)
  - CEREBROVASCULAR ACCIDENT [None]
